FAERS Safety Report 19750256 (Version 1)
Quarter: 2021Q3

REPORT INFORMATION
  Report Type: Spontaneous
  Country: US (occurrence: US)
  Receive Date: 20210826
  Receipt Date: 20210826
  Transmission Date: 20211014
  Serious: No
  Sender: FDA-Public Use
  Company Number: US-UPSHER-SMITH LABORATORIES, LLC-2021USL00409

PATIENT
  Sex: Female
  Weight: 74.83 kg

DRUGS (5)
  1. EXEMESTANE. [Suspect]
     Active Substance: EXEMESTANE
     Indication: BREAST CANCER
     Dosage: UNK, 1X/DAY
     Route: 048
     Dates: end: 2021
  2. UNKNOWN BLOOD PRESSURE MEDICATION [Concomitant]
     Active Substance: UNSPECIFIED INGREDIENT
  3. SYNTHROID [Concomitant]
     Active Substance: LEVOTHYROXINE SODIUM
  4. BIOTIN [Concomitant]
     Active Substance: BIOTIN
  5. NIACIN. [Concomitant]
     Active Substance: NIACIN

REACTIONS (9)
  - Skin ulcer [Recovering/Resolving]
  - Skin swelling [Recovering/Resolving]
  - Skin ulcer haemorrhage [Recovering/Resolving]
  - Rash macular [Recovering/Resolving]
  - Skin exfoliation [Recovering/Resolving]
  - Wound secretion [Recovering/Resolving]
  - Pain of skin [Recovering/Resolving]
  - Pruritus [Recovering/Resolving]
  - Erythema [Recovering/Resolving]
